FAERS Safety Report 6006135-4 (Version None)
Quarter: 2008Q4

REPORT INFORMATION
  Report Type: 
  Country: None (occurrence: None)
  Receive Date: 20081217
  Receipt Date: 20080103
  Transmission Date: 20090506
  Serious: No
  Sender: FDA-Public Use
  Company Number: US-BAUSCH-2008BL000021

PATIENT
  Age: 70 Year
  Sex: Female

DRUGS (2)
  1. ZYLET [Suspect]
     Indication: EYE INFLAMMATION
     Route: 047
     Dates: start: 20071221, end: 20071222
  2. HYPOTEARS DDPF [Concomitant]

REACTIONS (2)
  - DRUG HYPERSENSITIVITY [None]
  - OCULAR DISCOMFORT [None]
